FAERS Safety Report 8978114 (Version 1)
Quarter: 2012Q4

REPORT INFORMATION
  Report Type: 
  Country: US (occurrence: US)
  Receive Date: 20121221
  Receipt Date: 20121221
  Transmission Date: 20130627
  Serious: Yes (Hospitalization)
  Sender: FDA-Public Use
  Company Number: US-BAYER-2012-132827

PATIENT
  Age: 53 Year
  Sex: Female
  Weight: 68.03 kg

DRUGS (11)
  1. YAZ [Suspect]
     Dosage: UNK
     Dates: start: 20051010, end: 20080625
  2. OCELLA [Suspect]
     Dosage: UNK
     Dates: start: 20080729, end: 20100923
  3. ZARAH [Suspect]
     Dosage: UNK
     Dates: start: 20101021, end: 20110603
  4. IBUPROFEN [Concomitant]
  5. LYRICA [Concomitant]
     Dosage: 100 mg, UNK
  6. PRISTIQ [Concomitant]
     Dosage: 100 mg, UNK
  7. PRISTIQ [Concomitant]
     Dosage: 50 mg, 1 time per day
  8. HYDROCODONE W/APAP [Concomitant]
     Dosage: 10-325 mg
  9. PRIMIDONE [Concomitant]
     Dosage: 50 mg, BID
  10. LUNESTA [Concomitant]
     Dosage: 3 mg, UNK
  11. COMBIVENT [Concomitant]

REACTIONS (1)
  - Deep vein thrombosis [None]
